FAERS Safety Report 9288341 (Version 1)
Quarter: 2013Q2

REPORT INFORMATION
  Report Type: Spontaneous
  Country: JP (occurrence: JP)
  Receive Date: 20130514
  Receipt Date: 20130514
  Transmission Date: 20140414
  Serious: Yes (Other)
  Sender: FDA-Public Use
  Company Number: JP-PFIZER INC-2013144595

PATIENT
  Age: 71 Year
  Sex: Female

DRUGS (1)
  1. IDAMYCIN [Suspect]

REACTIONS (1)
  - Oesophageal stenosis [Unknown]
